FAERS Safety Report 8076439-2 (Version None)
Quarter: 2012Q1

REPORT INFORMATION
  Report Type: 
  Country: None (occurrence: None)
  Receive Date: 20120127
  Receipt Date: 20120123
  Transmission Date: 20120608
  Serious: Yes (Other)
  Sender: FDA-Public Use
  Company Number: CA-ROCHE-790221

PATIENT
  Sex: Male
  Weight: 69.008 kg

DRUGS (13)
  1. PLAQUENIL [Concomitant]
  2. MABTHERA [Suspect]
     Indication: SJOGREN'S SYNDROME
     Dosage: FREQUENCY:DAY 1 AND 15
     Route: 042
  3. PREDNISOLONE [Concomitant]
  4. DIOVAN [Concomitant]
  5. DIPHENHYDRAMINE HCL [Concomitant]
     Indication: PREMEDICATION
     Dosage: DOSE ONCE
     Route: 048
     Dates: start: 20110131, end: 20110131
  6. FOLIC ACID [Concomitant]
  7. MABTHERA [Suspect]
  8. HYDROMORPHONE HCL [Concomitant]
  9. VITAMIN D [Concomitant]
  10. CALCIUM [Concomitant]
  11. ACETAMINOPHEN [Concomitant]
     Indication: PREMEDICATION
     Dosage: ONCE
     Route: 048
     Dates: start: 20110131, end: 20110131
  12. METHYLPREDNISOLONE [Concomitant]
     Indication: PREMEDICATION
     Dosage: ONCE
     Route: 042
     Dates: start: 20110131, end: 20110131
  13. CELEBREX [Concomitant]

REACTIONS (1)
  - SKIN CANCER [None]
